FAERS Safety Report 6433207-2 (Version None)
Quarter: 2009Q4

REPORT INFORMATION
  Report Type: 
  Country: None (occurrence: None)
  Receive Date: 20091109
  Receipt Date: 20091102
  Transmission Date: 20100525
  Serious: Yes (Hospitalization, Other)
  Sender: FDA-Public Use
  Company Number: GB-WYE-G03679109

PATIENT
  Sex: Male
  Weight: 57 kg

DRUGS (2)
  1. REFACTO [Suspect]
     Dosage: 2500 IU EVERY 1 PRN
     Route: 042
     Dates: start: 20090407, end: 20090408
  2. REFACTO [Suspect]
     Dosage: UNKNOWN
     Dates: start: 20090115

REACTIONS (1)
  - FACTOR VIII INHIBITION [None]
